FAERS Safety Report 4439078-8 (Version None)
Quarter: 2004Q3

REPORT INFORMATION
  Report Type: 
  Country: None (occurrence: None)
  Receive Date: 20040901
  Receipt Date: 20040831
  Transmission Date: 20050211
  Serious: Yes (Disabling)
  Sender: FDA-Public Use
  Company Number: FR-GLAXOSMITHKLINE-B0343937A

PATIENT

DRUGS (4)
  1. ZYBAN [Suspect]
     Dosage: 150MG UNKNOWN
     Route: 048
  2. LEVOTHYROXINE SODIUM [Concomitant]
     Indication: THYROID DISORDER
  3. TENORMIN [Concomitant]
     Indication: HYPERTENSION
  4. OMEPRAZOLE [Concomitant]

REACTIONS (2)
  - CEREBRAL INFARCTION [None]
  - HEMIPLEGIA [None]
